FAERS Safety Report 13670488 (Version 2)
Quarter: 2017Q2

REPORT INFORMATION
  Report Type: Spontaneous
  Country: US (occurrence: US)
  Receive Date: 20170620
  Receipt Date: 20170628
  Transmission Date: 20170830
  Serious: Yes (Other)
  Sender: FDA-Public Use
  Company Number: US-ALEXION PHARMACEUTICALS INC-A201702358

PATIENT
  Age: 10 Year
  Sex: Male
  Weight: 32.9 kg

DRUGS (8)
  1. SOLIRIS [Suspect]
     Active Substance: ECULIZUMAB
     Indication: HAEMOLYTIC URAEMIC SYNDROME
     Dosage: 600 MG, QW
     Route: 042
     Dates: start: 20141230
  2. SOLIRIS [Suspect]
     Active Substance: ECULIZUMAB
     Dosage: EVERY 28 DAYS
     Route: 042
     Dates: start: 201606
  3. AMOXICILLIN. [Concomitant]
     Active Substance: AMOXICILLIN
     Indication: PRODUCT USED FOR UNKNOWN INDICATION
     Dosage: UNK, Q2W
     Route: 065
  4. BENADRYL [Concomitant]
     Active Substance: DIPHENHYDRAMINE HYDROCHLORIDE
     Indication: PRODUCT USED FOR UNKNOWN INDICATION
     Route: 065
  5. SOLIRIS [Suspect]
     Active Substance: ECULIZUMAB
     Dosage: 600 MG, UNK
     Route: 042
     Dates: start: 201611
  6. SOLIRIS [Suspect]
     Active Substance: ECULIZUMAB
     Dosage: UNK, Q2W
     Route: 042
  7. SOLIRIS [Suspect]
     Active Substance: ECULIZUMAB
     Dosage: Q21DAYS
     Route: 042
     Dates: start: 201511
  8. TYLENOL [Concomitant]
     Active Substance: ACETAMINOPHEN
     Indication: PRODUCT USED FOR UNKNOWN INDICATION
     Route: 065

REACTIONS (11)
  - Inappropriate schedule of drug administration [Unknown]
  - Complement factor C3 decreased [Unknown]
  - Swelling face [Recovered/Resolved]
  - Headache [Not Recovered/Not Resolved]
  - Hypertension [Unknown]
  - Total complement activity decreased [Unknown]
  - Somnolence [Unknown]
  - Blood urine present [Unknown]
  - Protein urine present [Unknown]
  - Haptoglobin decreased [Unknown]
  - Fatigue [Not Recovered/Not Resolved]

NARRATIVE: CASE EVENT DATE: 20170420
